FAERS Safety Report 8389762-9 (Version None)
Quarter: 2012Q2

REPORT INFORMATION
  Report Type: 
  Country: None (occurrence: None)
  Receive Date: 20120529
  Receipt Date: 20120522
  Transmission Date: 20120825
  Serious: Yes (Hospitalization, Other)
  Sender: FDA-Public Use
  Company Number: PHHY2011CA098589

PATIENT
  Sex: Male

DRUGS (2)
  1. SANDOSTATIN LAR [Suspect]
     Dosage: 30 MG, EVERY 4 WEEKS
     Route: 030
  2. SANDOSTATIN LAR [Suspect]
     Indication: METASTATIC CARCINOID TUMOUR
     Dosage: 30 MG, QMO
     Route: 030
     Dates: start: 20091204

REACTIONS (7)
  - INJECTION SITE PAIN [None]
  - PALLOR [None]
  - ASTHENIA [None]
  - FATIGUE [None]
  - COLON NEOPLASM [None]
  - WEIGHT DECREASED [None]
  - ANAEMIA [None]
